FAERS Safety Report 8520781-5 (Version None)
Quarter: 2012Q3

REPORT INFORMATION
  Report Type: 
  Country: None (occurrence: None)
  Receive Date: 20120719
  Receipt Date: 20120709
  Transmission Date: 20120928
  Serious: No
  Sender: FDA-Public Use
  Company Number: CA-JNJFOC-20120504515

PATIENT
  Sex: Female
  Weight: 122 kg

DRUGS (2)
  1. VALTREX [Interacting]
     Indication: HERPES ZOSTER
     Route: 065
  2. REMICADE [Suspect]
     Indication: CROHN'S DISEASE
     Dosage: 3 LOADING DOSES COMPLETED
     Route: 042
     Dates: start: 20120202

REACTIONS (4)
  - HERPES ZOSTER [None]
  - DRUG INTERACTION [None]
  - ERYTHEMA [None]
  - RASH [None]
